FAERS Safety Report 4265854-0 (Version None)
Quarter: 2004Q1

REPORT INFORMATION
  Report Type: 
  Country: None (occurrence: None)
  Receive Date: 20040107
  Receipt Date: 20030402
  Transmission Date: 20041129
  Serious: Yes (Hospitalization, Other)
  Sender: FDA-Public Use
  Company Number: PHEH2003US02859

PATIENT
  Age: 42 Year
  Sex: Female

DRUGS (12)
  1. AREDIA [Suspect]
     Indication: BREAST CANCER METASTATIC
     Dosage: 90 MG, UNK
     Dates: start: 20020201, end: 20020301
  2. ZOLEDRONATE [Suspect]
     Indication: METASTASES TO BONE
     Dosage: 4 MG, EVERY MONTH
     Route: 042
     Dates: start: 20021220, end: 20030620
  3. TAXOTERE [Concomitant]
     Indication: BREAST CANCER METASTATIC
     Dates: start: 20000201
  4. ARIMIDEX [Concomitant]
     Indication: BREAST CANCER METASTATIC
     Dosage: UNK, UNK
     Dates: start: 20000201
  5. STEROIDS NOS [Concomitant]
  6. HYDROMORPHONE HYDROCHLORIDE [Concomitant]
  7. AMBIEN [Concomitant]
  8. DIFLUCAN [Concomitant]
  9. EPOGEN [Concomitant]
  10. PERCOCET [Concomitant]
  11. ZOSYN [Concomitant]
  12. PROCRIT [Concomitant]

REACTIONS (12)
  - BREAST CANCER RECURRENT [None]
  - HYPOAESTHESIA ORAL [None]
  - IMPAIRED HEALING [None]
  - INFECTION [None]
  - METASTASIS [None]
  - OPEN WOUND [None]
  - OSTEOMYELITIS [None]
  - OSTEONECROSIS [None]
  - PAIN IN JAW [None]
  - SINUSITIS [None]
  - TOOTH EXTRACTION [None]
  - WOUND DEBRIDEMENT [None]
